FAERS Safety Report 9008032 (Version 1)
Quarter: 2013Q1

REPORT INFORMATION
  Report Type: Spontaneous
  Country: US (occurrence: US)
  Receive Date: 20130111
  Receipt Date: 20130111
  Transmission Date: 20140127
  Serious: No
  Sender: FDA-Public Use
  Company Number: US-PFIZER INC-2013009312

PATIENT
  Sex: 0

DRUGS (1)
  1. SOLU-CORTEF [Suspect]
     Indication: LEUKAEMIA
     Dosage: UNK
     Route: 037

REACTIONS (2)
  - Wrong technique in drug usage process [Unknown]
  - Malaise [Unknown]
